FAERS Safety Report 6771456-4 (Version None)
Quarter: 2010Q2

REPORT INFORMATION
  Report Type: 
  Country: None (occurrence: None)
  Receive Date: 20100611
  Receipt Date: 20100528
  Transmission Date: 20101027
  Serious: Yes (Other)
  Sender: FDA-Public Use
  Company Number: 2009SP038488

PATIENT
  Age: 74 Year
  Sex: Female

DRUGS (10)
  1. DESLORATADINE [Suspect]
     Indication: DRUG USE FOR UNKNOWN INDICATION
     Dosage: 5 MG;ONCE;PO
     Route: 048
     Dates: start: 20090527
  2. ADALAT CC [Concomitant]
  3. ADVAIR DISKUS 100/50 [Concomitant]
  4. ATROVENT [Concomitant]
  5. CALCIUM CARBONATE [Concomitant]
  6. ELAVIL [Concomitant]
  7. ELTROXIN [Concomitant]
  8. METRONIDAZOLE [Concomitant]
  9. VENTOLIN HFA [Concomitant]
  10. ZANTAC [Concomitant]

REACTIONS (2)
  - LIP SWELLING [None]
  - SWELLING FACE [None]
